FAERS Safety Report 13178840 (Version 1)
Quarter: 2017Q1

REPORT INFORMATION
  Report Type: Report from Study
  Country: US (occurrence: US)
  Receive Date: 20170202
  Receipt Date: 20170202
  Transmission Date: 20170428
  Serious: Yes (Other)
  Sender: FDA-Public Use
  Company Number: US-ROCHE-1885712

PATIENT
  Age: 65 Year
  Sex: Male

DRUGS (2)
  1. LUCENTIS [Suspect]
     Active Substance: RANIBIZUMAB
     Indication: MACULAR OEDEMA
  2. LUCENTIS [Suspect]
     Active Substance: RANIBIZUMAB
     Indication: DIABETIC RETINOPATHY
     Dosage: EVERY OTHER MONTH, INJECTION. BOTH EYES
     Route: 050
     Dates: start: 201607

REACTIONS (2)
  - Joint instability [Unknown]
  - Tendon injury [Unknown]

NARRATIVE: CASE EVENT DATE: 20170111
